FAERS Safety Report 24664426 (Version 1)
Quarter: 2024Q4

REPORT INFORMATION
  Report Type: Spontaneous
  Country: US (occurrence: None)
  Receive Date: 20241125
  Receipt Date: 20241125
  Transmission Date: 20250115
  Serious: Yes (Hospitalization)
  Sender: Public
  Company Number: None

PATIENT
  Age: 73 Year
  Sex: Male
  Weight: 94.5 kg

DRUGS (25)
  1. ATEZOLIZUMAB [Suspect]
     Active Substance: ATEZOLIZUMAB
     Indication: Bladder cancer
     Route: 042
     Dates: start: 20240409
  2. ETOPOSIDE [Suspect]
     Active Substance: ETOPOSIDE
     Indication: Bladder cancer
     Route: 042
     Dates: start: 20240409
  3. amLODIPine (NORVASC) 10 mg [Concomitant]
     Dates: start: 20150101
  4. PARoxetine (PAXIL) 20 MG [Concomitant]
     Dates: start: 20110101
  5. carbidopa-levodopa (SINEMET) 25-100 mg [Concomitant]
     Dates: start: 20210101
  6. pravastatin (PRAVACHOL) 40 MG [Concomitant]
     Dates: start: 20140101
  7. metFORMIN (GLUCOPHAGE) 1000 MG [Concomitant]
     Dates: start: 20240627
  8. Metoprolol SUCCINATE (TOPROL-XL) 25 MG [Concomitant]
     Dates: start: 20190101
  9. Trulicity 1.5 mg/0.5 mL PnIj injection [Concomitant]
     Dates: start: 20240521
  10. cranberry 500 mg Cap [Concomitant]
     Dates: start: 20220101
  11. fenofibrate (LOFIBRA) 160 MG [Concomitant]
     Dates: start: 20130101
  12. omeprazole (PRILOSEC OTC) 20 MG EC [Concomitant]
     Dates: start: 20140101
  13. omega-3 fatty acids-fish oil 300-500 mg Cap [Concomitant]
     Dates: start: 20240608
  14. multivitamin (TAB-A-VITE) tablet [Concomitant]
     Dates: start: 20130101
  15. docusate sodium (COLACE) 100 MG [Concomitant]
     Dates: start: 20160101
  16. CIPROFLOXACIN [Concomitant]
     Active Substance: CIPROFLOXACIN
     Dates: start: 20240313, end: 20240316
  17. Nitrofurantoin monohydrate macrocrystal 100 mg [Concomitant]
     Dates: start: 20240321, end: 20240326
  18. Insulin aspart	Sliding scale - SQ [Concomitant]
     Dates: start: 20240409, end: 20240626
  19. cefepime 2g	IV [Concomitant]
     Dates: start: 20240815, end: 20240818
  20. Insulin glargine 10U SQ daily [Concomitant]
     Dates: start: 20240627
  21. meropenem	1g	IV	TID [Concomitant]
     Dates: start: 20240827, end: 20240903
  22. ertapenam	1g	IV	daily [Concomitant]
     Dates: start: 20240903
  23. apixaban	2.5mg	Oral [Concomitant]
     Dates: start: 20240828, end: 20240829
  24. CARBOPLATIN [Suspect]
     Active Substance: CARBOPLATIN
  25. CISPLATIN [Suspect]
     Active Substance: CISPLATIN

REACTIONS (1)
  - Urinary tract infection [None]

NARRATIVE: CASE EVENT DATE: 20241122
